FAERS Safety Report 10258977 (Version 1)
Quarter: 2014Q2

REPORT INFORMATION
  Report Type: Spontaneous
  Country: US (occurrence: US)
  Receive Date: 20140625
  Receipt Date: 20140625
  Transmission Date: 20141212
  Serious: Yes (Other)
  Sender: FDA-Public Use
  Company Number: US-B.I. PHARMACEUTICALS,INC./RIDGEFIELD-2014-BI-27827BP

PATIENT
  Age: 54 Year
  Sex: Male
  Weight: 94.35 kg

DRUGS (22)
  1. FLOMAX [Suspect]
     Indication: PRODUCT USED FOR UNKNOWN INDICATION
     Route: 065
  2. HUMIRA [Suspect]
     Indication: CROHN^S DISEASE
     Route: 065
     Dates: start: 2008
  3. HUMIRA [Suspect]
     Dosage: 160 MG
     Route: 065
     Dates: start: 201404, end: 201404
  4. HUMIRA [Suspect]
     Dosage: 5.7143 MG
     Route: 065
  5. HUMIRA [Suspect]
     Dosage: 2.8571 MG
     Route: 065
  6. PLETAL [Suspect]
     Indication: PRODUCT USED FOR UNKNOWN INDICATION
     Route: 065
  7. PENTASA [Concomitant]
     Route: 065
  8. ENTOCORT [Concomitant]
     Route: 065
  9. IMURAN [Concomitant]
     Route: 065
  10. BYSTOLIC [Concomitant]
     Route: 065
  11. RANITIDINE [Concomitant]
     Route: 065
  12. NEXIUM [Concomitant]
     Route: 065
  13. CYMBALTA [Concomitant]
     Route: 065
  14. AVODART [Concomitant]
     Route: 065
  15. ATORVASTATIN [Concomitant]
     Route: 065
  16. PLAVIX [Concomitant]
     Dosage: 75 MG
     Route: 065
  17. FLUTICASONE [Concomitant]
     Dosage: FORMULATION: NASAL SPRAY
     Route: 045
  18. PROCTOSOL HC [Concomitant]
     Route: 054
  19. HYDROCORT [Concomitant]
     Route: 065
  20. BENADRYL [Concomitant]
     Route: 065
  21. ASPIRIN [Concomitant]
     Dosage: 325 MG
     Route: 065
  22. AZOR [Concomitant]
     Route: 065

REACTIONS (12)
  - Peripheral vascular disorder [Unknown]
  - Loss of consciousness [Recovered/Resolved]
  - Hypotension [Recovered/Resolved]
  - Intestinal fistula [Unknown]
  - Concussion [Recovered/Resolved]
  - Hypersensitivity [Recovered/Resolved]
  - Inflammation [Unknown]
  - Headache [Unknown]
  - Neck pain [Unknown]
  - Intervertebral disc compression [Unknown]
  - Headache [Recovered/Resolved]
  - Dizziness [Unknown]
